FAERS Safety Report 24964092 (Version 1)
Quarter: 2025Q1

REPORT INFORMATION
  Report Type: Spontaneous
  Country: US (occurrence: US)
  Receive Date: 20250213
  Receipt Date: 20250213
  Transmission Date: 20250409
  Serious: No
  Sender: AMNEAL
  Company Number: US-AMNEAL PHARMACEUTICALS-2024-AMRX-03935

PATIENT
  Age: 73 Year
  Sex: Male
  Weight: 94.331 kg

DRUGS (4)
  1. CLOBETASOL PROPIONATE [Suspect]
     Active Substance: CLOBETASOL PROPIONATE
     Indication: Product used for unknown indication
     Dosage: 0.5 MG/G, UNK, 2 /DAY
     Route: 065
     Dates: start: 20240505, end: 202407
  2. ELIQUIS [Concomitant]
     Active Substance: APIXABAN
     Indication: Product used for unknown indication
     Dosage: 5MG, 1 TABLETS, 2 /DAY
     Route: 048
  3. DIGOXIN [Concomitant]
     Active Substance: DIGOXIN
     Indication: Product used for unknown indication
     Dosage: 0.125MG, 1 TABLETS, 1 /DAY
     Route: 048
  4. DILTIAZEM HYDROCHLORIDE [Concomitant]
     Active Substance: DILTIAZEM HYDROCHLORIDE
     Indication: Product used for unknown indication
     Dosage: 250MG, 1 CAPSULES, 1 /DAY
     Route: 048

REACTIONS (3)
  - Chemical burn [Recovered/Resolved]
  - Pruritus [Recovered/Resolved]
  - Skin fissures [Not Recovered/Not Resolved]

NARRATIVE: CASE EVENT DATE: 20240505
